FAERS Safety Report 19853749 (Version 1)
Quarter: 2021Q3

REPORT INFORMATION
  Report Type: Spontaneous
  Country: CA (occurrence: CA)
  Receive Date: 20210920
  Receipt Date: 20210920
  Transmission Date: 20211014
  Serious: Yes (Other)
  Sender: FDA-Public Use
  Company Number: CA-CELLTRION INC.-2021CA008389

PATIENT

DRUGS (8)
  1. INFLECTRA [Suspect]
     Active Substance: INFLIXIMAB-DYYB
     Indication: PSORIATIC ARTHROPATHY
     Dosage: 400 MG (0, 6 WEEKS THEN EVERY 8 WEEKS)
     Route: 042
     Dates: start: 20210614
  2. INFLECTRA [Suspect]
     Active Substance: INFLIXIMAB-DYYB
     Dosage: 400MG,0, 6 WEEKS THEN EVERY 8 WEEKS
     Route: 042
     Dates: start: 20210614
  3. INFLECTRA [Suspect]
     Active Substance: INFLIXIMAB-DYYB
     Dosage: 400MG,0, 6 WEEKS THEN EVERY 8 WEEKS
     Route: 042
     Dates: start: 20210908
  4. INFLECTRA [Suspect]
     Active Substance: INFLIXIMAB-DYYB
     Dosage: UNK
     Route: 042
     Dates: start: 20210628, end: 20210628
  5. TYLENOL [Concomitant]
     Active Substance: ACETAMINOPHEN
     Dosage: 1 DF,DOSAGE NOT AVAILABLE
  6. INFLECTRA [Suspect]
     Active Substance: INFLIXIMAB-DYYB
     Dosage: 400MG,0, 6 WEEKS THEN EVERY 8 WEEKS
     Route: 042
     Dates: start: 20210728
  7. IBUPROFEN. [Concomitant]
     Active Substance: IBUPROFEN
     Dosage: 1 DF,DOSAGE NOT AVAILABLE
  8. MELOXICAM. [Concomitant]
     Active Substance: MELOXICAM
     Dosage: 15 MG, DAILY
     Route: 048

REACTIONS (5)
  - Immunodeficiency [Unknown]
  - Intentional product use issue [Unknown]
  - Off label use [Unknown]
  - COVID-19 [Unknown]
  - Off label use [Unknown]

NARRATIVE: CASE EVENT DATE: 2021
